FAERS Safety Report 7720695-4 (Version None)
Quarter: 2011Q3

REPORT INFORMATION
  Report Type: 
  Country: None (occurrence: None)
  Receive Date: 20110831
  Receipt Date: 20110824
  Transmission Date: 20111222
  Serious: Yes (Life-Threatening)
  Sender: FDA-Public Use
  Company Number: PHHY2011BR35102

PATIENT
  Sex: Female

DRUGS (7)
  1. FLUOXETINE [Concomitant]
     Indication: DEPRESSION
     Dosage: 1 DF, DAILY
  2. SUPREMA [Concomitant]
     Dosage: UNK UKN, UNK
  3. METFORMIN [Concomitant]
     Indication: HYPERGLYCAEMIA
     Dosage: 0.5 DF, BID
  4. LEXOTAN [Concomitant]
     Dosage: 1 DF, DAILY
  5. CLORANA [Concomitant]
     Indication: HYPERTENSION
     Dosage: 1 DF, DAILY
  6. SIMVASTATIN [Concomitant]
     Indication: BLOOD CHOLESTEROL INCREASED
     Dosage: 1 DF, DAILY
  7. EXFORGE [Suspect]
     Indication: HYPERTENSION
     Dosage: 1 DF, DAILY
     Route: 048

REACTIONS (11)
  - FEELING ABNORMAL [None]
  - BLOOD PRESSURE FLUCTUATION [None]
  - HYPERHIDROSIS [None]
  - MENOPAUSE [None]
  - HYPERTENSION [None]
  - INSOMNIA [None]
  - HEADACHE [None]
  - MALAISE [None]
  - CHEST DISCOMFORT [None]
  - TACHYCARDIA [None]
  - FATIGUE [None]
